FAERS Safety Report 13049428 (Version 2)
Quarter: 2016Q4

REPORT INFORMATION
  Report Type: Spontaneous
  Country: TR (occurrence: TR)
  Receive Date: 20161221
  Receipt Date: 20161228
  Transmission Date: 20170207
  Serious: Yes (Hospitalization)
  Sender: FDA-Public Use
  Company Number: PHHY2016TR172727

PATIENT
  Age: 10 Month
  Sex: Female
  Weight: 3.5 kg

DRUGS (2)
  1. VALPROATE SODIUM. [Suspect]
     Active Substance: VALPROATE SODIUM
     Indication: EPILEPSY
     Route: 065
  2. CARBAMAZEPINE. [Suspect]
     Active Substance: CARBAMAZEPINE
     Indication: EPILEPSY
     Route: 065

REACTIONS (4)
  - Generalised tonic-clonic seizure [Unknown]
  - Febrile convulsion [Unknown]
  - Status epilepticus [Unknown]
  - Clonic convulsion [Unknown]
